FAERS Safety Report 9026315 (Version 1)
Quarter: 2013Q1

REPORT INFORMATION
  Report Type: Spontaneous
  Country: US (occurrence: US)
  Receive Date: 20130123
  Receipt Date: 20130123
  Transmission Date: 20140127
  Serious: No
  Sender: FDA-Public Use
  Company Number: US-BAYER-2013-004191

PATIENT
  Age: 51 Year
  Sex: Male
  Weight: 75.74 kg

DRUGS (19)
  1. BETASERON [Suspect]
     Dosage: 0.25 MG, UNK
  2. BETASERON [Suspect]
     Dosage: 1 ML, QOD
     Route: 058
  3. SINGULAIR [Concomitant]
     Dosage: 10 MG, UNK
  4. ANDROGEL [Concomitant]
     Dosage: 50 MG, UNK
  5. OLOPATADINE HYDROCHLORIDE [Concomitant]
     Dosage: 0.6 %, UNK
  6. LYRICA [Concomitant]
     Dosage: 100 MG, UNK
  7. TRILIPIX [Concomitant]
     Dosage: 45 MG, UNK
  8. EXELON [Concomitant]
     Dosage: 4.6 MG, UNK
  9. SIMVASTATIN [Concomitant]
     Dosage: 10 MG, UNK
  10. BACLOFEN [Concomitant]
     Dosage: 10 MG, UNK
  11. AMANTADINE [Concomitant]
     Dosage: 100 MG, UNK
  12. FLOMAX [Concomitant]
     Dosage: 0.4 MG, UNK
  13. RANITIDINE [Concomitant]
     Dosage: 300 MG, UNK
  14. COQ10 [Concomitant]
     Dosage: 100 MG, UNK
  15. FOLIC ACID [Concomitant]
     Dosage: UNK DF, UNK
  16. VITAMIN D3 [Concomitant]
     Dosage: 1000 U, UNK
  17. FISH OIL [Concomitant]
  18. OMEGA 3 [Concomitant]
     Dosage: 1000 MG, UNK
  19. NUVIGIL [Concomitant]
     Dosage: 150 MG, UNK

REACTIONS (1)
  - Influenza like illness [Recovered/Resolved]
